FAERS Safety Report 6251288-6 (Version None)
Quarter: 2009Q2

REPORT INFORMATION
  Report Type: 
  Country: None (occurrence: None)
  Receive Date: 20090630
  Receipt Date: 20090618
  Transmission Date: 20091009
  Serious: Yes (Other)
  Sender: FDA-Public Use
  Company Number: PHHY2009DE18587

PATIENT
  Sex: Female
  Weight: 90 kg

DRUGS (8)
  1. RASILEZ [Suspect]
     Indication: HYPERTENSION
     Dosage: UNK
     Dates: start: 20090427, end: 20090506
  2. TRAMADOL HCL [Concomitant]
     Indication: POLYARTHRITIS
     Dosage: UNK
     Dates: start: 20040101
  3. BETA BLOCKING AGENTS [Concomitant]
  4. INDOMETHACIN [Concomitant]
     Indication: POLYARTHRITIS
     Dosage: UNK
     Dates: start: 20040101
  5. RAMIPRIL [Concomitant]
     Indication: HYPERTENSION
     Dosage: UNK
     Dates: start: 20070101
  6. HYDROCHLOROTHIAZIDE [Concomitant]
     Indication: HYPERTENSION
     Dosage: UNK
     Dates: start: 20070101
  7. TORSEMIDE [Concomitant]
     Indication: HYPERTENSION
     Dosage: UNK
     Dates: start: 20070101
  8. PLANUM [Concomitant]
     Indication: INSOMNIA
     Dosage: UNK
     Dates: start: 20040101

REACTIONS (8)
  - ARTHRALGIA [None]
  - BLOOD CREATININE INCREASED [None]
  - OEDEMA [None]
  - PRURITUS [None]
  - RASH ERYTHEMATOUS [None]
  - RENAL FAILURE [None]
  - RENAL FAILURE ACUTE [None]
  - URINE OUTPUT DECREASED [None]
